FAERS Safety Report 9100952 (Version 1)
Quarter: 2013Q1

REPORT INFORMATION
  Report Type: Spontaneous
  Country: US (occurrence: US)
  Receive Date: 20130215
  Receipt Date: 20130215
  Transmission Date: 20140127
  Serious: No
  Sender: FDA-Public Use
  Company Number: US-BAYER-2013-017468

PATIENT
  Age: 32 Year
  Sex: Female

DRUGS (2)
  1. MIRENA [Suspect]
     Indication: CONTRACEPTION
     Dosage: 20 MCG/24HR, CONT
     Route: 015
  2. MIRENA [Suspect]
     Indication: CONTRACEPTION
     Dosage: 20 MCG/24HR, CONT
     Route: 015
     Dates: start: 20130109

REACTIONS (5)
  - Device misuse [None]
  - Lip swelling [Not Recovered/Not Resolved]
  - Wound secretion [Not Recovered/Not Resolved]
  - Scab [Not Recovered/Not Resolved]
  - Lip exfoliation [Not Recovered/Not Resolved]
